FAERS Safety Report 6098985-3 (Version None)
Quarter: 2009Q1

REPORT INFORMATION
  Report Type: 
  Country: None (occurrence: None)
  Receive Date: 20090302
  Receipt Date: 20090216
  Transmission Date: 20090719
  Serious: Yes (Hospitalization, Other)
  Sender: FDA-Public Use
  Company Number: US-ROCHE-599376

PATIENT
  Sex: Male
  Weight: 74.8 kg

DRUGS (2)
  1. CAPECITABINE [Suspect]
     Indication: COLORECTAL CANCER
     Route: 065
     Dates: start: 20080924
  2. CAPECITABINE [Suspect]
     Route: 065
     Dates: end: 20090126

REACTIONS (7)
  - ASTHENIA [None]
  - DYSPHAGIA [None]
  - ERYTHEMA [None]
  - FALL [None]
  - HYPOAESTHESIA [None]
  - OEDEMA PERIPHERAL [None]
  - TREMOR [None]
